FAERS Safety Report 9580332 (Version 1)
Quarter: 2013Q3

REPORT INFORMATION
  Report Type: Spontaneous
  Country: US (occurrence: None)
  Receive Date: 20130916
  Receipt Date: 20130916
  Transmission Date: 20140515
  Serious: Yes (Other)
  Sender: FDA-Public Use
  Company Number: JPI-P-029387

PATIENT
  Age: 67 Year
  Sex: Female
  Weight: 64.41 kg

DRUGS (14)
  1. XYREM [Suspect]
     Indication: SLEEP APNOEA SYNDROME
     Dosage: 6 GM (3 GM,  2 IN  1 D), ORAL
     Route: 048
     Dates: start: 20050531
  2. OXYCODONE HYDROCHLORIDE [Concomitant]
  3. TRAZODONE [Concomitant]
  4. DICLOFENAC POTASSIUM [Concomitant]
  5. DULOXETINE HYDROCHLORIDE [Concomitant]
  6. SAXAGLIPTIN HYDROCHLORIDE [Concomitant]
  7. FENOFIBRATE [Concomitant]
  8. LEVETIRACETAM [Concomitant]
  9. MECLIZINE HYDROCHLORIDE [Concomitant]
  10. PROMETHAZINE [Concomitant]
  11. METAXALONE [Concomitant]
  12. PREGABALIN [Concomitant]
  13. TIOTROPIUM BROMIDE MONOHYDRATE [Concomitant]
  14. VALSARTAN [Concomitant]

REACTIONS (2)
  - Blood pressure systolic increased [None]
  - Condition aggravated [None]
